FAERS Safety Report 19614690 (Version 1)
Quarter: 2021Q3

REPORT INFORMATION
  Report Type: Report from Study
  Country: IT (occurrence: IT)
  Receive Date: 20210727
  Receipt Date: 20210727
  Transmission Date: 20211014
  Serious: Yes (Hospitalization)
  Sender: FDA-Public Use
  Company Number: IT-MYLANLABS-2021M1044386

PATIENT
  Age: 86 Year
  Sex: Female

DRUGS (8)
  1. ASCRIPTIN [Concomitant]
     Active Substance: ASPIRIN
     Dosage: 150 MILLIGRAM
  2. LACIREX [Concomitant]
     Active Substance: LACIDIPINE
     Dosage: UNK
  3. TORVAST [Concomitant]
     Active Substance: ATORVASTATIN
     Dosage: UNK
  4. PARACETAMOL MYLAN [Suspect]
     Active Substance: ACETAMINOPHEN
     Indication: PRODUCT USED FOR UNKNOWN INDICATION
     Dosage: 3 GRAM, QD
     Route: 048
     Dates: start: 20200101, end: 20210102
  5. ANTRA                              /00661201/ [Concomitant]
     Active Substance: OMEPRAZOLE
     Dosage: UNK
  6. KANRENOL [Concomitant]
     Active Substance: CANRENOATE POTASSIUM
     Dosage: UNK
  7. COAPROVEL [Concomitant]
     Active Substance: HYDROCHLOROTHIAZIDE\IRBESARTAN
     Dosage: UNK
  8. EUTIROX [Concomitant]
     Active Substance: LEVOTHYROXINE SODIUM
     Dosage: UNK

REACTIONS (2)
  - Hypertransaminasaemia [Not Recovered/Not Resolved]
  - Overflow diarrhoea [Not Recovered/Not Resolved]

NARRATIVE: CASE EVENT DATE: 20210102
